FAERS Safety Report 8207079-X (Version None)
Quarter: 2012Q1

REPORT INFORMATION
  Report Type: 
  Country: None (occurrence: None)
  Receive Date: 20120314
  Receipt Date: 20120306
  Transmission Date: 20120608
  Serious: Yes (Hospitalization)
  Sender: FDA-Public Use
  Company Number: US-BAYER-2012-023015

PATIENT
  Age: 23 Year
  Sex: Female
  Weight: 86.2 kg

DRUGS (13)
  1. CITALOPRAM [Concomitant]
     Indication: ANXIETY
     Dosage: 20 MG, QD
     Route: 048
     Dates: start: 20110224
  2. LEVOXYL [Concomitant]
     Indication: HYPOTHYROIDISM
     Dosage: 112 MCG, QD
     Route: 048
     Dates: start: 20110224
  3. DROSPIRENONE AND ETHINYL ESTRADIOL [Concomitant]
     Dosage: UNK
     Dates: start: 20110107, end: 20110410
  4. AMOXICILLIN [Concomitant]
     Indication: OTITIS MEDIA
     Dosage: 500 MG, QID
     Route: 048
     Dates: start: 20110207
  5. MUCINEX [Concomitant]
     Dosage: UNK
     Route: 048
     Dates: start: 20110207
  6. DROSPIRENONE AND ETHINYL ESTRADIOL [Suspect]
     Indication: POLYCYSTIC OVARIES
  7. IBUPROFEN (ADVIL) [Concomitant]
     Dosage: UNK
     Route: 048
     Dates: start: 20110207
  8. TOBRAMYCIN SULFATE [Concomitant]
     Indication: CONJUNCTIVITIS
     Dosage: 1 DROP LEFT EYE, QID
     Route: 031
     Dates: start: 20110224
  9. YAZ [Suspect]
     Indication: POLYCYSTIC OVARIES
  10. DAYQUIL [DEXTROMET HBR,GUAIF,PARACET,PSEUDOEPH HCL] [Concomitant]
     Dosage: UNK
     Route: 048
     Dates: start: 20110207
  11. ALPRAZOLAM [Concomitant]
     Indication: ANXIETY
     Dosage: 0.25 MG, BID
     Route: 048
     Dates: start: 20110224
  12. LEVOTHYROXINE SODIUM [Concomitant]
  13. TYLENOL PM [Concomitant]
     Indication: INSOMNIA
     Dosage: AS DIRECTED
     Route: 048
     Dates: start: 20110224

REACTIONS (1)
  - PULMONARY EMBOLISM [None]
